FAERS Safety Report 25450982 (Version 3)
Quarter: 2025Q4

REPORT INFORMATION
  Report Type: Spontaneous
  Country: US (occurrence: US)
  Receive Date: 20250618
  Receipt Date: 20251021
  Transmission Date: 20260119
  Serious: No
  Sender: PFIZER
  Company Number: US-PFIZER INC-202500122542

PATIENT
  Age: 74 Year
  Sex: Female

DRUGS (1)
  1. AZULFIDINE EN-TABS [Suspect]
     Active Substance: SULFASALAZINE
     Indication: Pain
     Dosage: 1500 MG, 2X/DAY (3 TABLETS TWICE A DAY)
     Dates: start: 1981

REACTIONS (3)
  - Drug ineffective [Unknown]
  - Food poisoning [Recovered/Resolved]
  - Feeling abnormal [Not Recovered/Not Resolved]

NARRATIVE: CASE EVENT DATE: 20250101
